FAERS Safety Report 25962176 (Version 1)
Quarter: 2025Q4

REPORT INFORMATION
  Report Type: Report from Study
  Country: GB (occurrence: GB)
  Receive Date: 20251027
  Receipt Date: 20251027
  Transmission Date: 20260118
  Serious: Yes (Death)
  Sender: ABBVIE
  Company Number: GB-ABBVIE-6519837

PATIENT
  Sex: Female

DRUGS (1)
  1. SKYRIZI [Suspect]
     Active Substance: RISANKIZUMAB-RZAA
     Indication: Psoriasis
     Dosage: 1 X SKYRIZI 150MG/1ML, INJECT ONE PRE-FILLED PEN EVERY TWELVE WEEKS
     Route: 058
     Dates: start: 20230110

REACTIONS (1)
  - Death [Fatal]
